FAERS Safety Report 7753449-3 (Version None)
Quarter: 2011Q3

REPORT INFORMATION
  Report Type: 
  Country: None (occurrence: None)
  Receive Date: 20110915
  Receipt Date: 20110902
  Transmission Date: 20111222
  Serious: Yes (Hospitalization)
  Sender: FDA-Public Use
  Company Number: US-ELI_LILLY_AND_COMPANY-US201109000348

PATIENT
  Sex: Female

DRUGS (11)
  1. ASPIRIN [Concomitant]
  2. LORTAB [Concomitant]
  3. NUCYNTA [Concomitant]
  4. VITAMIN D [Concomitant]
  5. FORTEO [Suspect]
     Indication: OSTEOPOROSIS
     Dosage: 20 UG, QD
     Dates: start: 20110702
  6. CYANOCOBALAMIN [Concomitant]
  7. FORTEO [Suspect]
     Dosage: 20 UG, QD
  8. PREVACID [Concomitant]
  9. DIOVAN [Concomitant]
  10. NEURONTIN [Concomitant]
  11. ELAVIL [Concomitant]

REACTIONS (12)
  - SPINAL FRACTURE [None]
  - MALAISE [None]
  - ABDOMINAL DISTENSION [None]
  - INSOMNIA [None]
  - FRACTURE [None]
  - FEELING JITTERY [None]
  - RESPIRATORY DISORDER [None]
  - MUSCLE SPASMS [None]
  - IRRITABILITY [None]
  - ABDOMINAL PAIN UPPER [None]
  - BACK PAIN [None]
  - INJECTION SITE HAEMATOMA [None]
